FAERS Safety Report 9927906 (Version 1)
Quarter: 2014Q1

REPORT INFORMATION
  Report Type: Spontaneous
  Country: US (occurrence: US)
  Receive Date: 20140227
  Receipt Date: 20140227
  Transmission Date: 20141002
  Serious: No
  Sender: FDA-Public Use
  Company Number: US-PFIZER INC-2014055443

PATIENT
  Age: 55 Year
  Sex: Female

DRUGS (1)
  1. INLYTA [Suspect]
     Dosage: 5 MG, 2X/DAY (BID)
     Dates: start: 20130815

REACTIONS (2)
  - Nausea [Unknown]
  - Bowel movement irregularity [Unknown]
